FAERS Safety Report 14038212 (Version 3)
Quarter: 2017Q4

REPORT INFORMATION
  Report Type: Report from Study
  Country: US (occurrence: US)
  Receive Date: 20171004
  Receipt Date: 20171130
  Transmission Date: 20180321
  Serious: Yes (Hospitalization)
  Sender: FDA-Public Use
  Company Number: US-BAYER-2017-174131

PATIENT
  Age: 76 Year
  Sex: Male

DRUGS (17)
  1. FIBER [Concomitant]
     Active Substance: PSYLLIUM HUSK
  2. NEXAVAR [Suspect]
     Active Substance: SORAFENIB
     Indication: PRODUCT USED FOR UNKNOWN INDICATION
     Dosage: 400 MG, BID
     Route: 048
     Dates: start: 20170914
  3. JANUVIA [Concomitant]
     Active Substance: SITAGLIPTIN PHOSPHATE
  4. PROBIOTICA [Concomitant]
     Active Substance: PROBIOTICS NOS
     Dosage: UNK, QD
  5. METAMUCIL [Concomitant]
     Active Substance: PLANTAGO SEED
  6. INSULIN [Concomitant]
     Active Substance: INSULIN NOS
  7. LOMOTIL [DIPHENOXYLATE HYDROCHLORIDE] [Concomitant]
  8. PROTONIX [Concomitant]
     Active Substance: PANTOPRAZOLE SODIUM
  9. NYSTATIN. [Concomitant]
     Active Substance: NYSTATIN
  10. PROPRANOLOL HCL W/HYDROCHLOROTHIAZIDE [Concomitant]
  11. LANTUS [Concomitant]
     Active Substance: INSULIN GLARGINE
  12. NEXAVAR [Suspect]
     Active Substance: SORAFENIB
     Indication: PRODUCT USED FOR UNKNOWN INDICATION
     Dosage: 400 MG, BID
     Route: 048
  13. SIMVASTATIN. [Concomitant]
     Active Substance: SIMVASTATIN
  14. PROPRANOLOL HYDROCHLORIDE. [Concomitant]
     Active Substance: PROPRANOLOL HYDROCHLORIDE
  15. SPIRONOLACTONE. [Concomitant]
     Active Substance: SPIRONOLACTONE
  16. LISINOPRIL. [Concomitant]
     Active Substance: LISINOPRIL
  17. FUROSEMIDE. [Concomitant]
     Active Substance: FUROSEMIDE

REACTIONS (8)
  - Fungal infection [None]
  - Diarrhoea [Not Recovered/Not Resolved]
  - Pancreatitis [None]
  - Diarrhoea [None]
  - Confusional state [None]
  - Gingival bleeding [None]
  - Gastrointestinal disorder [None]
  - Flatulence [None]

NARRATIVE: CASE EVENT DATE: 20170920
